FAERS Safety Report 7029087-7 (Version None)
Quarter: 2010Q4

REPORT INFORMATION
  Report Type: 
  Country: None (occurrence: None)
  Receive Date: 20101005
  Receipt Date: 20100927
  Transmission Date: 20110411
  Serious: Yes (Hospitalization)
  Sender: FDA-Public Use
  Company Number: B0677233A

PATIENT
  Sex: Male
  Weight: 50 kg

DRUGS (16)
  1. ALKERAN [Suspect]
     Indication: STEM CELL TRANSPLANT
     Dosage: 210MG PER DAY
     Route: 042
     Dates: start: 20100718, end: 20100718
  2. CYMERIN [Suspect]
     Indication: STEM CELL TRANSPLANT
     Dosage: 450MG PER DAY
     Route: 042
     Dates: start: 20100713, end: 20100713
  3. CYLOCIDE [Suspect]
     Indication: STEM CELL TRANSPLANT
     Dosage: 600MG PER DAY
     Route: 042
     Dates: start: 20100714, end: 20100717
  4. LASTET [Suspect]
     Indication: STEM CELL TRANSPLANT
     Dosage: 150MG PER DAY
     Route: 065
     Dates: start: 20100714, end: 20100717
  5. RITUXAN [Concomitant]
     Indication: STEM CELL TRANSPLANT
     Dosage: 600MG PER DAY
     Route: 042
     Dates: start: 20100719, end: 20100719
  6. NEUTROGIN [Concomitant]
     Route: 042
     Dates: start: 20100721, end: 20100801
  7. MAXIPIME [Concomitant]
     Dosage: 3G PER DAY
     Route: 042
     Dates: start: 20100723, end: 20100802
  8. TAKEPRON [Concomitant]
     Dosage: 15MG PER DAY
     Route: 048
     Dates: start: 20100713
  9. BAKTAR [Concomitant]
     Dosage: 1IUAX PER DAY
     Route: 048
     Dates: start: 20100713, end: 20100714
  10. FLUCONAZOLE [Concomitant]
     Dosage: 200MG PER DAY
     Route: 048
     Dates: start: 20100713
  11. URSO 250 [Concomitant]
     Dosage: 3IUAX PER DAY
     Route: 048
     Dates: start: 20100713
  12. ASPIRIN [Concomitant]
     Dosage: 1G PER DAY
     Route: 048
     Dates: start: 20100713
  13. EMEND [Concomitant]
     Route: 048
     Dates: start: 20100718, end: 20100720
  14. CALONAL [Concomitant]
     Route: 048
     Dates: start: 20100724, end: 20100725
  15. BIO THREE [Concomitant]
     Dosage: 3IUAX PER DAY
     Route: 048
     Dates: start: 20100729
  16. DECADRON [Concomitant]
     Dosage: 4MG PER DAY
     Dates: start: 20100713, end: 20100718

REACTIONS (2)
  - DECREASED APPETITE [None]
  - DIARRHOEA [None]
